FAERS Safety Report 10268830 (Version 1)
Quarter: 2014Q2

REPORT INFORMATION
  Report Type: Spontaneous
  Country: BR (occurrence: BR)
  Receive Date: 20140630
  Receipt Date: 20140630
  Transmission Date: 20141212
  Serious: Yes (Other)
  Sender: FDA-Public Use
  Company Number: PHHY2014BR078105

PATIENT
  Age: 78 Year
  Sex: Female

DRUGS (2)
  1. VISKALDIX [Suspect]
     Dosage: UNK UKN, UNK
  2. ATENOLOL [Suspect]
     Dosage: UNK UKN, UNK

REACTIONS (1)
  - Blood pressure increased [Unknown]
